FAERS Safety Report 6492311-3 (Version None)
Quarter: 2009Q4

REPORT INFORMATION
  Report Type: 
  Country: None (occurrence: None)
  Receive Date: 20091214
  Receipt Date: 20091210
  Transmission Date: 20100525
  Serious: Yes (Life-Threatening)
  Sender: FDA-Public Use
  Company Number: FR-SANOFI-AVENTIS-2009SA007721

PATIENT
  Age: 87 Year
  Sex: Female

DRUGS (12)
  1. LOVENOX [Suspect]
     Indication: THROMBOSIS PROPHYLAXIS
     Route: 058
     Dates: start: 20091027, end: 20091104
  2. LOVENOX [Suspect]
     Route: 058
     Dates: start: 20091109, end: 20091114
  3. LOVENOX [Suspect]
     Dosage: ONLY ON THE MORNING
     Route: 058
     Dates: start: 20091115
  4. COUMADIN [Suspect]
     Route: 048
     Dates: start: 19810101, end: 20091026
  5. COUMADIN [Suspect]
     Route: 048
     Dates: start: 20091027, end: 20091103
  6. ALDALIX [Concomitant]
     Indication: DRUG USE FOR UNKNOWN INDICATION
     Route: 048
  7. DIFFU K [Concomitant]
     Indication: DRUG USE FOR UNKNOWN INDICATION
     Route: 048
  8. FUROSEMIDE [Concomitant]
     Indication: DRUG USE FOR UNKNOWN INDICATION
     Route: 048
  9. LEVOTHYROXINE SODIUM [Concomitant]
     Indication: DRUG USE FOR UNKNOWN INDICATION
     Route: 048
  10. AUGMENTIN /SCH/ [Concomitant]
     Route: 065
     Dates: start: 20091027, end: 20091103
  11. ROCEPHIN [Concomitant]
     Dates: start: 20091103, end: 20091112
  12. FLAGYL [Concomitant]
     Dates: start: 20091103, end: 20091109

REACTIONS (3)
  - ANAEMIA [None]
  - INTERNATIONAL NORMALISED RATIO INCREASED [None]
  - MUSCLE HAEMORRHAGE [None]
